FAERS Safety Report 6978416-9 (Version None)
Quarter: 2010Q3

REPORT INFORMATION
  Report Type: 
  Country: None (occurrence: None)
  Receive Date: 20100913
  Receipt Date: 20100831
  Transmission Date: 20110219
  Serious: Yes (Hospitalization)
  Sender: FDA-Public Use
  Company Number: PHHY2010GR57452

PATIENT
  Sex: Female
  Weight: 70 kg

DRUGS (4)
  1. ZOLEDRONATE T29581++BM [Suspect]
     Dosage: UNK
     Route: 042
     Dates: start: 20100721, end: 20100813
  2. METHOTREXATE [Concomitant]
     Indication: METASTASES TO MENINGES
     Dosage: 12.5 UNK, UNK
     Dates: start: 20100713, end: 20100726
  3. TAXOTERE [Concomitant]
     Indication: METASTASES TO LIVER
     Dosage: 130 MG, UNK
     Dates: start: 20100721, end: 20100813
  4. BEVACIZUMAB [Concomitant]
     Indication: METASTASES TO LIVER
     Dosage: 1000 MG, UNK
     Dates: start: 20100721, end: 20100813

REACTIONS (1)
  - FEBRILE NEUTROPENIA [None]
